FAERS Safety Report 11098353 (Version 2)
Quarter: 2015Q2

REPORT INFORMATION
  Report Type: Report from Study
  Country: US (occurrence: US)
  Receive Date: 20150507
  Receipt Date: 20150514
  Transmission Date: 20150821
  Serious: Yes (Death, Hospitalization)
  Sender: FDA-Public Use
  Company Number: US-ACTELION-A-NJ2015-116538

PATIENT
  Age: 62 Year
  Sex: Female

DRUGS (6)
  1. VELETRI [Suspect]
     Active Substance: EPOPROSTENOL
     Indication: PULMONARY ARTERIAL HYPERTENSION
     Dosage: 6 NG/KG, PER MIN
     Route: 042
     Dates: start: 20150323
  2. SILDENAFIL. [Concomitant]
     Active Substance: SILDENAFIL
  3. VELETRI [Suspect]
     Active Substance: EPOPROSTENOL
     Dosage: 13 NG/KG, PER MIN
     Route: 042
     Dates: end: 20150505
  4. RIOCIGUAT [Concomitant]
     Active Substance: RIOCIGUAT
  5. TRACLEER [Suspect]
     Active Substance: BOSENTAN\BOSENTAN MONOHYDRATE
     Indication: PULMONARY ARTERIAL HYPERTENSION
     Dosage: UNK
     Route: 048
     Dates: end: 20150505
  6. COUMADIN [Concomitant]
     Active Substance: WARFARIN SODIUM

REACTIONS (7)
  - Intestinal obstruction [Unknown]
  - Dizziness [Unknown]
  - Death [Fatal]
  - Fall [Unknown]
  - Oxygen saturation abnormal [Unknown]
  - Nausea [Unknown]
  - Malaise [Unknown]

NARRATIVE: CASE EVENT DATE: 20150505
